FAERS Safety Report 9345853 (Version 2)
Quarter: 2013Q2

REPORT INFORMATION
  Report Type: Spontaneous
  Country: PE (occurrence: PE)
  Receive Date: 20130613
  Receipt Date: 20130624
  Transmission Date: 20140414
  Serious: Yes (Other)
  Sender: FDA-Public Use
  Company Number: PE-PFIZER INC-2013175603

PATIENT
  Age: 82 Year
  Sex: Female

DRUGS (2)
  1. LOPID [Suspect]
     Dosage: UNK
     Route: 048
     Dates: start: 201304, end: 201305
  2. LIPITOR [Suspect]
     Indication: HYPERTRIGLYCERIDAEMIA
     Dosage: UNK
     Route: 048
     Dates: start: 201304, end: 201305

REACTIONS (1)
  - Syncope [Recovered/Resolved]
